FAERS Safety Report 10136869 (Version 2)
Quarter: 2014Q2

REPORT INFORMATION
  Report Type: Spontaneous
  Country: AU (occurrence: AU)
  Receive Date: 20140429
  Receipt Date: 20140513
  Transmission Date: 20141212
  Serious: Yes (Other)
  Sender: FDA-Public Use
  Company Number: AU-BAYER-2014-057464

PATIENT
  Sex: Female

DRUGS (1)
  1. CANESTEN 1% CREAM - 6 DAY CREAM WITH 2% BA [Suspect]
     Indication: CANDIDA INFECTION
     Dosage: UNK
     Dates: start: 201402

REACTIONS (2)
  - Genital haemorrhage [None]
  - Product quality issue [None]
